FAERS Safety Report 5632511-5 (Version None)
Quarter: 2008Q1

REPORT INFORMATION
  Report Type: 
  Country: None (occurrence: None)
  Receive Date: 20080220
  Receipt Date: 20080214
  Transmission Date: 20080703
  Serious: Yes (Other)
  Sender: FDA-Public Use
  Company Number: ES-BRISTOL-MYERS SQUIBB COMPANY-14077051

PATIENT
  Age: 45 Year
  Sex: Male

DRUGS (6)
  1. KALETRA [Suspect]
     Route: 048
     Dates: start: 20060703
  2. TENOFOVIR DF + EMTRICITABINE [Suspect]
     Route: 048
     Dates: start: 20060703
  3. PRAVASTATIN [Concomitant]
     Dates: start: 20070604
  4. TRAZODONE HCL [Concomitant]
     Dates: start: 20030501
  5. ZOLPIDEM [Concomitant]
     Dates: start: 20030501
  6. ESCITALOPRAM [Concomitant]
     Dates: start: 20030501

REACTIONS (1)
  - HYPERLIPIDAEMIA [None]
